FAERS Safety Report 9978225 (Version 1)
Quarter: 2014Q1

REPORT INFORMATION
  Report Type: Spontaneous
  Country: US (occurrence: US)
  Receive Date: 20140306
  Receipt Date: 20140306
  Transmission Date: 20141002
  Serious: No
  Sender: FDA-Public Use
  Company Number: US-PFIZER INC-2014066282

PATIENT
  Age: 53 Year
  Sex: Female

DRUGS (5)
  1. PRISTIQ [Suspect]
     Dosage: UNK
  2. CLINDAMYCIN PHOSPHATE [Suspect]
     Dosage: UNK
  3. BIAXIN [Suspect]
     Dosage: UNK
  4. LAMISIL [Suspect]
     Dosage: UNK
  5. CIPROFLOXACIN [Suspect]
     Dosage: UNK

REACTIONS (1)
  - Drug hypersensitivity [Unknown]
